FAERS Safety Report 12291853 (Version 4)
Quarter: 2016Q3

REPORT INFORMATION
  Report Type: Spontaneous
  Country: US (occurrence: US)
  Receive Date: 20160421
  Receipt Date: 20160711
  Transmission Date: 20161109
  Serious: No
  Sender: FDA-Public Use
  Company Number: US-BRISTOL-MYERS SQUIBB COMPANY-BMS-2016-029231

PATIENT
  Sex: Female

DRUGS (7)
  1. CODEINE [Concomitant]
     Active Substance: CODEINE
     Indication: PRODUCT USED FOR UNKNOWN INDICATION
     Route: 065
  2. MIRALAX [Concomitant]
     Active Substance: POLYETHYLENE GLYCOL 3350
     Indication: CONSTIPATION
     Route: 065
  3. CYMBALTA [Concomitant]
     Active Substance: DULOXETINE HYDROCHLORIDE
     Indication: PRODUCT USED FOR UNKNOWN INDICATION
     Dosage: 20 MG, QD
     Route: 065
  4. TYLENOL [Concomitant]
     Active Substance: ACETAMINOPHEN
     Indication: PRODUCT USED FOR UNKNOWN INDICATION
     Route: 065
  5. SPRYCEL [Suspect]
     Active Substance: DASATINIB
     Indication: WHITE BLOOD CELL DISORDER
     Dosage: 100MG
     Route: 065
     Dates: start: 20150714
  6. SPRYCEL [Suspect]
     Active Substance: DASATINIB
     Indication: FIBROUS DYSPLASIA OF BONE
     Dosage: 100 MG, QD
     Route: 048
     Dates: start: 201507
  7. MAGNESIUM [Concomitant]
     Active Substance: MAGNESIUM
     Indication: PRODUCT USED FOR UNKNOWN INDICATION
     Route: 065

REACTIONS (15)
  - Hypersensitivity [Unknown]
  - Tension [Unknown]
  - Dyspnoea [Unknown]
  - Anxiety [Unknown]
  - Constipation [Unknown]
  - Pruritus [Unknown]
  - Chest pain [Unknown]
  - Stress [Unknown]
  - Abdominal distension [Unknown]
  - Feeling abnormal [Unknown]
  - Rash [Unknown]
  - Off label use [Unknown]
  - Insomnia [Unknown]
  - Diarrhoea [Unknown]
  - Fungal infection [Not Recovered/Not Resolved]
